FAERS Safety Report 5280154-8 (Version None)
Quarter: 2007Q1

REPORT INFORMATION
  Report Type: 
  Country: None (occurrence: None)
  Receive Date: 20070326
  Receipt Date: 20070326
  Transmission Date: 20070707
  Serious: Yes (Other)
  Sender: FDA-Public Use
  Company Number: None

PATIENT
  Age: 34 Year
  Sex: Male
  Weight: 88.4514 kg

DRUGS (1)
  1. LUNESTA [Suspect]
     Dosage: ONCE DAILY PO
     Route: 048
     Dates: start: 20040301, end: 20040328

REACTIONS (1)
  - DYSGEUSIA [None]
